FAERS Safety Report 14516571 (Version 1)
Quarter: 2018Q1

REPORT INFORMATION
  Report Type: Other
  Country: GB (occurrence: GB)
  Receive Date: 20180212
  Receipt Date: 20180212
  Transmission Date: 20180509
  Serious: Yes (Disabling)
  Sender: FDA-Public Use
  Company Number: GB-TAKEDA-2018TEU000728

PATIENT
  Age: 49 Year
  Sex: Male
  Weight: 83.46 kg

DRUGS (1)
  1. LANSOPRAZOLE. [Suspect]
     Active Substance: LANSOPRAZOLE
     Indication: BARRETT^S OESOPHAGUS
     Dosage: 15 MG, QD
     Route: 048
     Dates: start: 19960501, end: 20180115

REACTIONS (14)
  - Paraesthesia [Unknown]
  - Vitamin B12 deficiency [Recovering/Resolving]
  - Intrinsic factor deficiency [Recovering/Resolving]
  - Hypoaesthesia [Unknown]
  - Decreased appetite [Unknown]
  - Palpitations [Unknown]
  - Mood swings [Unknown]
  - Fatigue [Unknown]
  - Musculoskeletal disorder [Unknown]
  - Depression [Unknown]
  - Spinal osteoarthritis [Unknown]
  - Calcium deficiency [Unknown]
  - Panic disorder [Unknown]
  - Blood disorder [Unknown]

NARRATIVE: CASE EVENT DATE: 20080501
